FAERS Safety Report 6723474-X (Version None)
Quarter: 2010Q2

REPORT INFORMATION
  Report Type: 
  Country: None (occurrence: None)
  Receive Date: 20100513
  Receipt Date: 20100504
  Transmission Date: 20101027
  Serious: Yes (Other)
  Sender: FDA-Public Use
  Company Number: US-BRISTOL-MYERS SQUIBB COMPANY-13067566

PATIENT
  Age: 27 Year
  Sex: Female

DRUGS (4)
  1. EFAVIRENZ CAPS [Suspect]
     Indication: ACQUIRED IMMUNODEFICIENCY SYNDROME
  2. LAMIVUDINE [Suspect]
     Indication: ACQUIRED IMMUNODEFICIENCY SYNDROME
  3. TENOFOVIR [Suspect]
     Indication: ACQUIRED IMMUNODEFICIENCY SYNDROME
  4. NEVIRAPINE [Suspect]
     Indication: ACQUIRED IMMUNODEFICIENCY SYNDROME
     Dosage: STARTED WEEK 16 OF GESTATION CONTINUED TO DELIVERY

REACTIONS (3)
  - GESTATIONAL DIABETES [None]
  - LIVE BIRTH [None]
  - PREGNANCY [None]
